FAERS Safety Report 19869292 (Version 1)
Quarter: 2021Q3

REPORT INFORMATION
  Report Type: Spontaneous
  Country: CN (occurrence: CN)
  Receive Date: 20210922
  Receipt Date: 20210922
  Transmission Date: 20211014
  Serious: Yes (Other)
  Sender: FDA-Public Use
  Company Number: NVSC2021CN212951

PATIENT
  Sex: Female

DRUGS (4)
  1. LOTENSIN [Suspect]
     Active Substance: BENAZEPRIL HYDROCHLORIDE
     Dosage: 1 TABLET IN THE MORNING AND HALF A TABLET AT NOON AND HALF A TABLET AT NIGHT EACH DAY)
     Route: 048
  2. LOTENSIN [Suspect]
     Active Substance: BENAZEPRIL HYDROCHLORIDE
     Dosage: 1 TABLET IN THE MORNING AND HALF A TABLET AT NOON AND HALF A TABLET AT NIGHT)
     Route: 048
  3. LOTENSIN [Suspect]
     Active Substance: BENAZEPRIL HYDROCHLORIDE
     Indication: PRODUCT USED FOR UNKNOWN INDICATION
     Dosage: 0.5 DF, TID (10MG HALF A TABLET AT A TIME)
     Route: 048
  4. LOTENSIN [Suspect]
     Active Substance: BENAZEPRIL HYDROCHLORIDE
     Dosage: 2 DF, QD (10MG TABLET)
     Route: 048

REACTIONS (3)
  - Wrong technique in product usage process [Unknown]
  - Drug ineffective [Unknown]
  - Blood pressure systolic abnormal [Recovered/Resolved]
